FAERS Safety Report 7537961-8 (Version None)
Quarter: 2011Q2

REPORT INFORMATION
  Report Type: 
  Country: None (occurrence: None)
  Receive Date: 20110609
  Receipt Date: 20110529
  Transmission Date: 20111010
  Serious: Yes (Hospitalization)
  Sender: FDA-Public Use
  Company Number: US-BAYER-2011-047190

PATIENT
  Age: 48 Year
  Sex: Female

DRUGS (2)
  1. ACETYLSALICYLIC ACID SRT [Suspect]
     Indication: ARTHRALGIA
     Dosage: 650 MG, Q4HR
     Route: 048
  2. ACETYLSALICYLIC ACID SRT [Suspect]
     Indication: PYREXIA

REACTIONS (1)
  - COLITIS [None]
